FAERS Safety Report 9786118 (Version 1)
Quarter: 2013Q4

REPORT INFORMATION
  Report Type: Spontaneous
  Country: RU (occurrence: RU)
  Receive Date: 20131227
  Receipt Date: 20131227
  Transmission Date: 20140711
  Serious: Yes (Hospitalization)
  Sender: FDA-Public Use
  Company Number: PHHY2013RU151459

PATIENT
  Age: 56 Year
  Sex: Female

DRUGS (5)
  1. GLIVEC [Suspect]
     Route: 048
  2. LEUKOVORIN [Concomitant]
  3. FLUOROURACIL-TEVA [Concomitant]
  4. ONDANSETRON [Concomitant]
  5. DEXAMETHASONE [Concomitant]

REACTIONS (2)
  - Neoplasm malignant [Recovering/Resolving]
  - Metastases to liver [Recovering/Resolving]
